FAERS Safety Report 16229093 (Version 2)
Quarter: 2019Q3

REPORT INFORMATION
  Report Type: Report from Study
  Country: US (occurrence: US)
  Receive Date: 20190423
  Receipt Date: 20190702
  Transmission Date: 20191004
  Serious: No
  Sender: FDA-Public Use
  Company Number: US-ADAMAS PHARMA, LLC-2019ADA00832

PATIENT
  Age: 68 Year
  Sex: Male
  Weight: 78.01 kg

DRUGS (21)
  1. CARBIDOPA/LEVODPA ER [Concomitant]
     Dosage: 1 TABLETS, 1X/DAY AT BEDTIME
  2. GABAPENTIN. [Concomitant]
     Active Substance: GABAPENTIN
     Dosage: 300 MG, 1X/DAY
  3. NEUPRO [Concomitant]
     Active Substance: ROTIGOTINE
     Dosage: 4 MG, 1X/DAY IN THE MORNING
  4. BUPROPION XL [Concomitant]
     Active Substance: BUPROPION
  5. GABAPENTIN. [Concomitant]
     Active Substance: GABAPENTIN
     Dosage: 600 MG, 2X/DAY
  6. AZILECT [Concomitant]
     Active Substance: RASAGILINE MESYLATE
     Dosage: 1 MG, 1X/DAY
  7. PACERONE [Concomitant]
     Active Substance: AMIODARONE HYDROCHLORIDE
  8. FUROSEMIDE. [Concomitant]
     Active Substance: FUROSEMIDE
  9. CARBIDOPA/LEVODPA [Concomitant]
     Dosage: 0.5 TABLETS, 2X/DAY
  10. NAPROXEN. [Concomitant]
     Active Substance: NAPROXEN
  11. KCL [Concomitant]
     Active Substance: POTASSIUM CHLORIDE
  12. ATORVASTATIN [Concomitant]
     Active Substance: ATORVASTATIN
  13. THYROXINE [Concomitant]
     Active Substance: LEVOTHYROXINE
  14. GOCOVRI [Suspect]
     Active Substance: AMANTADINE
     Indication: DYSKINESIA
     Dosage: 137 MG, 1X/DAY AT BEDTIME
     Route: 048
     Dates: start: 20190318, end: 20190324
  15. CLONAZEPAM. [Concomitant]
     Active Substance: CLONAZEPAM
  16. CARVEDILOL. [Concomitant]
     Active Substance: CARVEDILOL
  17. DETROL [Concomitant]
     Active Substance: TOLTERODINE TARTRATE
  18. ASA [Concomitant]
     Active Substance: ASPIRIN
  19. GOCOVRI [Suspect]
     Active Substance: AMANTADINE
     Dosage: 274 MG, 1X/DAY AT BEDTIME
     Route: 048
     Dates: start: 20190325, end: 20190329
  20. CARBIDOPA/LEVODPA [Concomitant]
     Dosage: 1 TABLETS, 2X/DAY
  21. LISINOPRIL. [Concomitant]
     Active Substance: LISINOPRIL

REACTIONS (1)
  - Syncope [Recovering/Resolving]

NARRATIVE: CASE EVENT DATE: 20190329
